FAERS Safety Report 5852763-6 (Version None)
Quarter: 2008Q3

REPORT INFORMATION
  Report Type: 
  Country: None (occurrence: None)
  Receive Date: 20080819
  Receipt Date: 20070201
  Transmission Date: 20090109
  Serious: Yes (Death, Life-Threatening)
  Sender: FDA-Public Use
  Company Number: 2007-00125FE

PATIENT
  Age: 37 Year
  Sex: Male

DRUGS (1)
  1. ZOMACTON (ZOMACTON) (SOMATROPIN) [Suspect]
     Dosage: 0.3 MG SC
     Route: 058
     Dates: start: 20050628, end: 20060415

REACTIONS (5)
  - CONVULSION [None]
  - FACIAL PALSY [None]
  - HEMIPARESIS [None]
  - INTRACRANIAL PRESSURE INCREASED [None]
  - TERATOMA [None]
